FAERS Safety Report 13143963 (Version 2)
Quarter: 2017Q3

REPORT INFORMATION
  Report Type: Spontaneous
  Country: US (occurrence: US)
  Receive Date: 20170124
  Receipt Date: 20170921
  Transmission Date: 20171127
  Serious: Yes (Hospitalization)
  Sender: FDA-Public Use
  Company Number: US-INCYTE CORPORATION-2017IN000431

PATIENT

DRUGS (11)
  1. JAKAFI [Suspect]
     Active Substance: RUXOLITINIB
     Dosage: 5 MG BID
     Route: 048
     Dates: start: 2017
  2. VITAMIN B12 [Concomitant]
     Active Substance: CYANOCOBALAMIN
     Indication: PRODUCT USED FOR UNKNOWN INDICATION
  3. JAKAFI [Suspect]
     Active Substance: RUXOLITINIB
     Dosage: 5 MG, BID
     Route: 048
     Dates: start: 20161222
  4. ALLOPURINOL. [Concomitant]
     Active Substance: ALLOPURINOL
     Indication: PRODUCT USED FOR UNKNOWN INDICATION
  5. XANAX [Concomitant]
     Active Substance: ALPRAZOLAM
     Indication: PRODUCT USED FOR UNKNOWN INDICATION
  6. JAKAFI [Suspect]
     Active Substance: RUXOLITINIB
     Indication: MYELOFIBROSIS
     Dosage: 5 MG, BID
     Route: 048
  7. JAKAFI [Suspect]
     Active Substance: RUXOLITINIB
     Dosage: 10 MG BID
     Route: 048
     Dates: start: 201703
  8. GABAPENTIN. [Concomitant]
     Active Substance: GABAPENTIN
     Indication: PRODUCT USED FOR UNKNOWN INDICATION
  9. PROTONIX                           /00661201/ [Concomitant]
     Active Substance: OMEPRAZOLE
     Indication: PRODUCT USED FOR UNKNOWN INDICATION
  10. POTASSIUM [Concomitant]
     Active Substance: POTASSIUM
     Indication: PRODUCT USED FOR UNKNOWN INDICATION
  11. NORCO [Concomitant]
     Active Substance: ACETAMINOPHEN\HYDROCODONE BITARTRATE
     Indication: PRODUCT USED FOR UNKNOWN INDICATION

REACTIONS (10)
  - Muscle spasms [Unknown]
  - Contusion [Unknown]
  - Urinary tract infection [Unknown]
  - Alopecia [Unknown]
  - Gastric ulcer haemorrhage [Recovering/Resolving]
  - Splenomegaly [Unknown]
  - Platelet count decreased [Unknown]
  - Bone pain [Unknown]
  - Pain in extremity [Unknown]
  - Pneumonia [Unknown]

NARRATIVE: CASE EVENT DATE: 201703
